FAERS Safety Report 15767687 (Version 1)
Quarter: 2018Q4

REPORT INFORMATION
  Report Type: Report from Study
  Country: GB (occurrence: GB)
  Receive Date: 20181227
  Receipt Date: 20181227
  Transmission Date: 20190205
  Serious: Yes (Hospitalization)
  Sender: FDA-Public Use
  Company Number: GB-JNJFOC-20181228042

PATIENT
  Sex: Male

DRUGS (1)
  1. STELARA [Suspect]
     Active Substance: USTEKINUMAB
     Indication: CROHN^S DISEASE
     Dosage: AT WEEK 16
     Route: 058
     Dates: start: 20180910

REACTIONS (3)
  - Crohn^s disease [Unknown]
  - Gastrointestinal stoma complication [Unknown]
  - Loss of consciousness [Unknown]

NARRATIVE: CASE EVENT DATE: 2018
